FAERS Safety Report 7653948-9 (Version None)
Quarter: 2011Q3

REPORT INFORMATION
  Report Type: 
  Country: None (occurrence: None)
  Receive Date: 20110803
  Receipt Date: 20110722
  Transmission Date: 20111222
  Serious: Yes (Hospitalization, Other)
  Sender: FDA-Public Use
  Company Number: US-JNJFOC-20110403886

PATIENT
  Sex: Female
  Weight: 63.6 kg

DRUGS (4)
  1. SULFAMETHOXAZOLE AND TRIMETHOPRIM [Concomitant]
  2. DIFFERIN [Concomitant]
  3. INFLIXIMAB, RECOMBINANT [Suspect]
     Indication: INFLAMMATORY BOWEL DISEASE
     Route: 042
     Dates: start: 20080917
  4. SIMVASTATIN [Concomitant]

REACTIONS (1)
  - OSTEONECROSIS [None]
